FAERS Safety Report 15813873 (Version 1)
Quarter: 2019Q1

REPORT INFORMATION
  Report Type: Spontaneous
  Country: US (occurrence: US)
  Receive Date: 20190111
  Receipt Date: 20190111
  Transmission Date: 20190417
  Serious: Yes (Life-Threatening, Hospitalization)
  Sender: FDA-Public Use
  Company Number: None

PATIENT
  Age: 58 Year
  Sex: Male
  Weight: 83.25 kg

DRUGS (1)
  1. IBRUTINIB [Suspect]
     Active Substance: IBRUTINIB
     Indication: CENTRAL NERVOUS SYSTEM LYMPHOMA
     Route: 048
     Dates: start: 20170725, end: 20180221

REACTIONS (6)
  - Atrial fibrillation [None]
  - Off label use [None]
  - Haemothorax [None]
  - Cardiac tamponade [None]
  - Sudden death [None]
  - Drug interaction [None]

NARRATIVE: CASE EVENT DATE: 20180302
